FAERS Safety Report 20324833 (Version 2)
Quarter: 2022Q2

REPORT INFORMATION
  Report Type: Spontaneous
  Country: US (occurrence: US)
  Receive Date: 20220111
  Receipt Date: 20220414
  Transmission Date: 20220721
  Serious: No
  Sender: FDA-Public Use
  Company Number: US-MYOVANT SCIENCES GMBH-2021MYSCI1200306

PATIENT
  Sex: Male

DRUGS (19)
  1. ORGOVYX [Suspect]
     Active Substance: RELUGOLIX
     Indication: Prostate cancer
     Dosage: 360 MILLIGRAM, ONE TIME DOSE
     Route: 048
     Dates: start: 20211020, end: 20211020
  2. ORGOVYX [Suspect]
     Active Substance: RELUGOLIX
     Dosage: 120 MILLIGRAM, QD
     Route: 048
     Dates: start: 20211021
  3. CRESTOR [Concomitant]
     Active Substance: ROSUVASTATIN CALCIUM
     Indication: Blood cholesterol
     Dosage: 40 MILLIGRAM, QD
     Route: 048
  4. CYMBALTA [Concomitant]
     Active Substance: DULOXETINE HYDROCHLORIDE
     Indication: Anxiety
     Dosage: 30 MILLIGRAM, QD
     Route: 048
  5. CYMBALTA [Concomitant]
     Active Substance: DULOXETINE HYDROCHLORIDE
     Indication: Affective disorder
  6. CYMBALTA [Concomitant]
     Active Substance: DULOXETINE HYDROCHLORIDE
     Indication: Post-traumatic stress disorder
  7. ASPIRIN                            /00002701/ [Concomitant]
     Indication: Cardiac disorder
     Dosage: 81 MILLIGRAM, BID
     Route: 048
  8. DULCOLAX (BISACODYL) [Concomitant]
     Active Substance: BISACODYL
     Indication: Faeces hard
     Dosage: UNK
     Route: 065
  9. MULTI VITAMIN                      /08408501/ [Concomitant]
     Indication: Supplementation therapy
     Dosage: UNK
     Route: 065
  10. FISH OIL [Concomitant]
     Active Substance: FISH OIL
     Indication: Prophylaxis
     Dosage: UNK
     Route: 065
  11. FISH OIL [Concomitant]
     Active Substance: FISH OIL
     Indication: Cardiac disorder
  12. FISH OIL [Concomitant]
     Active Substance: FISH OIL
     Indication: Arthropathy
  13. BORAX                              /00629201/ [Concomitant]
     Indication: Prophylaxis
     Dosage: UNK
     Route: 065
  14. BORAX                              /00629201/ [Concomitant]
     Indication: Cardiac disorder
  15. BORAX                              /00629201/ [Concomitant]
     Indication: Arthropathy
  16. FLAXSEED OIL                       /01649403/ [Concomitant]
     Indication: Prophylaxis
     Dosage: UNK
     Route: 065
  17. FLAXSEED OIL                       /01649403/ [Concomitant]
     Indication: Cardiac disorder
  18. FLAXSEED OIL                       /01649403/ [Concomitant]
     Indication: Arthropathy
  19. FERROUS SULFATE ANHYDROUS [Concomitant]
     Active Substance: FERROUS SULFATE ANHYDROUS
     Indication: Blood iron decreased
     Dosage: UNK
     Route: 065

REACTIONS (7)
  - Joint swelling [Not Recovered/Not Resolved]
  - Renal disorder [Unknown]
  - Peripheral swelling [Unknown]
  - Arthralgia [Not Recovered/Not Resolved]
  - Pain in extremity [Unknown]
  - Myalgia [Unknown]
  - Vision blurred [Unknown]
